FAERS Safety Report 8100571-8 (Version None)
Quarter: 2012Q1

REPORT INFORMATION
  Report Type: 
  Country: None (occurrence: None)
  Receive Date: 20120129
  Receipt Date: 20111121
  Transmission Date: 20120608
  Serious: No
  Sender: FDA-Public Use
  Company Number: US-ABBOTT-11P-163-0875637-00

PATIENT
  Sex: Female
  Weight: 36.32 kg

DRUGS (6)
  1. OXYCONTIN [Concomitant]
     Indication: ARTHRALGIA
  2. CALCIUM [Concomitant]
     Indication: SUPPLEMENTATION THERAPY
  3. RELAFEN [Concomitant]
     Indication: RHEUMATOID ARTHRITIS
  4. HUMIRA [Suspect]
     Indication: RHEUMATOID ARTHRITIS
     Route: 058
     Dates: start: 20060101
  5. PRILOSEC [Concomitant]
     Indication: GASTROOESOPHAGEAL REFLUX DISEASE
  6. UNKNOWN MEDICATION [Concomitant]
     Indication: ARRHYTHMIA

REACTIONS (4)
  - ALTERED VISUAL DEPTH PERCEPTION [None]
  - ILL-DEFINED DISORDER [None]
  - EYE HAEMORRHAGE [None]
  - VISION BLURRED [None]
